FAERS Safety Report 4965877-X (Version None)
Quarter: 2006Q2

REPORT INFORMATION
  Report Type: 
  Country: None (occurrence: None)
  Receive Date: 20060406
  Receipt Date: 20060406
  Transmission Date: 20061013
  Serious: Yes (Life-Threatening, Hospitalization)
  Sender: FDA-Public Use
  Company Number: None

PATIENT
  Age: 72 Year
  Sex: Female
  Weight: 71 kg

DRUGS (11)
  1. XIGRIS [Suspect]
     Indication: MULTI-ORGAN FAILURE
     Dosage: 20 MG/100 ML CONTINOUS IV DRIP
     Route: 041
     Dates: start: 20060401, end: 20060402
  2. XIGRIS [Suspect]
     Indication: SEPSIS
     Dosage: 20 MG/100 ML CONTINOUS IV DRIP
     Route: 041
     Dates: start: 20060401, end: 20060402
  3. OXYCODONE [Concomitant]
  4. METOPROLOL [Concomitant]
  5. HYDROCHLOROTHIAZIDE [Concomitant]
  6. WARFARIN [Concomitant]
  7. METFORMIN [Concomitant]
  8. PERCOCET [Concomitant]
  9. AMIODARONE HCL [Concomitant]
  10. LISINOPRIL [Concomitant]
  11. LEVOFLOXACIN [Concomitant]

REACTIONS (1)
  - RECTAL HAEMORRHAGE [None]
